FAERS Safety Report 7471313-4 (Version None)
Quarter: 2011Q2

REPORT INFORMATION
  Report Type: 
  Country: None (occurrence: None)
  Receive Date: 20110510
  Receipt Date: 20110427
  Transmission Date: 20111010
  Serious: Yes (Life-Threatening, Hospitalization)
  Sender: FDA-Public Use
  Company Number: DE-SANOFI-AVENTIS-2011SA002324

PATIENT
  Age: 59 Year
  Sex: Female

DRUGS (7)
  1. DESMOPRESSIN ACETATE [Suspect]
     Indication: DENTAL IMPLANTATION
     Dosage: 19 L INJECTION//4 AMPOULES OF 4 MCG ADDED 100 ML NACL 0.9% DOSE:0.3 UNIT(S)/KILOGRAM BODYWEIGHT
     Route: 041
     Dates: start: 20100304, end: 20100304
  2. CANDESARTAN CILEXETIL AND HYDROCHLOROTHIAZIDE [Suspect]
     Route: 065
  3. DOXYCYCLINE [Concomitant]
     Route: 048
     Dates: start: 20100305, end: 20100305
  4. DOLORMIN [Concomitant]
     Indication: GINGIVAL OPERATION
     Route: 048
     Dates: start: 20100304, end: 20100304
  5. DESMOPRESSIN ACETATE [Suspect]
     Indication: VON WILLEBRAND'S DISEASE
     Dosage: 19 L INJECTION//4 AMPOULES OF 4 MCG ADDED 100 ML NACL 0.9% DOSE:0.3 UNIT(S)/KILOGRAM BODYWEIGHT
     Route: 041
     Dates: start: 20100304, end: 20100304
  6. CYKLOKAPRON [Concomitant]
     Indication: VON WILLEBRAND'S DISEASE
     Route: 048
     Dates: start: 20100303, end: 20100305
  7. DOXYCYCLINE [Concomitant]
     Route: 048
     Dates: start: 20100304, end: 20100304

REACTIONS (4)
  - BRAIN OEDEMA [None]
  - HYPOKALAEMIA [None]
  - HYPONATRAEMIA [None]
  - HYPOCHLORAEMIA [None]
